FAERS Safety Report 13260648 (Version 2)
Quarter: 2017Q2

REPORT INFORMATION
  Report Type: Spontaneous
  Country: JP (occurrence: JP)
  Receive Date: 20170222
  Receipt Date: 20170420
  Transmission Date: 20170830
  Serious: Yes (Other)
  Sender: FDA-Public Use
  Company Number: JP-JNJFOC-20170220286

PATIENT
  Age: 84 Year
  Sex: Female
  Weight: 54.8 kg

DRUGS (14)
  1. MEVALOTIN [Concomitant]
     Active Substance: PRAVASTATIN SODIUM
     Route: 048
     Dates: end: 20161121
  2. DOGMATYL [Concomitant]
     Active Substance: SULPIRIDE
     Route: 048
  3. SEPAZON [Concomitant]
     Active Substance: CLOXAZOLAM
     Route: 048
  4. TRANSAMIN [Concomitant]
     Active Substance: TRANEXAMIC ACID
     Route: 065
  5. NESINA [Concomitant]
     Active Substance: ALOGLIPTIN BENZOATE
     Route: 048
     Dates: end: 20161122
  6. YUEKIN KEEP [Concomitant]
     Route: 065
  7. CARBAZOCHROME SODIUM SULFONATE [Concomitant]
     Active Substance: CARBAZOCHROME SODIUM SULFONATE
     Route: 065
  8. XARELTO [Suspect]
     Active Substance: RIVAROXABAN
     Indication: ATRIAL FIBRILLATION
     Route: 048
     Dates: start: 20161116, end: 20161118
  9. XARELTO [Suspect]
     Active Substance: RIVAROXABAN
     Indication: ATRIAL FIBRILLATION
     Route: 048
     Dates: start: 20160303, end: 20160920
  10. XARELTO [Suspect]
     Active Substance: RIVAROXABAN
     Indication: CEREBROVASCULAR ACCIDENT PROPHYLAXIS
     Route: 048
     Dates: start: 20160303, end: 20160920
  11. XARELTO [Suspect]
     Active Substance: RIVAROXABAN
     Indication: CEREBROVASCULAR ACCIDENT PROPHYLAXIS
     Route: 048
     Dates: start: 20161116, end: 20161118
  12. CANDESARTAN. [Concomitant]
     Active Substance: CANDESARTAN
     Route: 048
  13. CELTECT [Concomitant]
     Active Substance: OXATOMIDE
     Route: 048
  14. GLUCOSE [Concomitant]
     Active Substance: DEXTROSE
     Route: 065

REACTIONS (4)
  - Melaena [Recovering/Resolving]
  - Fall [Unknown]
  - Traumatic haemorrhage [Unknown]
  - Haemoglobin decreased [Recovering/Resolving]

NARRATIVE: CASE EVENT DATE: 20160907
